FAERS Safety Report 16188272 (Version 1)
Quarter: 2019Q2

REPORT INFORMATION
  Report Type: Spontaneous
  Country: CA (occurrence: CA)
  Receive Date: 20190412
  Receipt Date: 20190412
  Transmission Date: 20190711
  Serious: Yes (Other)
  Sender: FDA-Public Use
  Company Number: CA-TEVA-2019-CA-1036731

PATIENT
  Age: 66 Year
  Sex: Female

DRUGS (12)
  1. METHOTREXATE. [Suspect]
     Active Substance: METHOTREXATE
     Indication: PRODUCT USED FOR UNKNOWN INDICATION
     Route: 065
  2. SULFASALAZINE. [Concomitant]
     Active Substance: SULFASALAZINE
     Route: 065
  3. ACTEMRA [Suspect]
     Active Substance: TOCILIZUMAB
     Indication: RHEUMATOID ARTHRITIS
     Route: 065
  4. FOLIC ACID. [Concomitant]
     Active Substance: FOLIC ACID
  5. PANTOPRAZOLE SODIUM ANHYDROUS [Concomitant]
     Active Substance: PANTOPRAZOLE SODIUM ANHYDROUS
  6. ORENCIA [Suspect]
     Active Substance: ABATACEPT
     Indication: PRODUCT USED FOR UNKNOWN INDICATION
     Route: 042
  7. ASPIRIN. [Concomitant]
     Active Substance: ASPIRIN
  8. SALBUTAMOL [Concomitant]
     Active Substance: ALBUTEROL
     Route: 065
  9. HUMIRA [Suspect]
     Active Substance: ADALIMUMAB
     Indication: RHEUMATOID ARTHRITIS
     Route: 058
  10. ENBREL [Suspect]
     Active Substance: ETANERCEPT
     Indication: RHEUMATOID ARTHRITIS
     Route: 058
  11. FLOVENT [Concomitant]
     Active Substance: FLUTICASONE PROPIONATE
  12. ROSUVASTATIN CALCIUM. [Concomitant]
     Active Substance: ROSUVASTATIN CALCIUM

REACTIONS (10)
  - C-reactive protein abnormal [Unknown]
  - Red blood cell sedimentation rate abnormal [Unknown]
  - Rheumatoid factor positive [Unknown]
  - Dermatitis allergic [Unknown]
  - Hepatitis [Unknown]
  - Pruritus [Unknown]
  - Liver disorder [Unknown]
  - Bone erosion [Unknown]
  - Hypersensitivity [Unknown]
  - Burning sensation [Unknown]
